FAERS Safety Report 23427958 (Version 4)
Quarter: 2025Q3

REPORT INFORMATION
  Report Type: Spontaneous
  Country: US (occurrence: US)
  Receive Date: 20240122
  Receipt Date: 20250803
  Transmission Date: 20251020
  Serious: Yes (Other)
  Sender: UCB
  Company Number: US-UCBSA-2023030807

PATIENT
  Age: 49 Year
  Sex: Male
  Weight: 97.868 kg

DRUGS (6)
  1. CIMZIA [Suspect]
     Active Substance: CERTOLIZUMAB PEGOL
     Indication: Rheumatoid arthritis
     Dosage: 200 MILLIGRAM EV 2 WEEKS
     Route: 058
     Dates: start: 20191028, end: 20231116
  2. CIMZIA [Suspect]
     Active Substance: CERTOLIZUMAB PEGOL
     Dosage: 200 MILLIGRAM EV 2 WEEKS
     Route: 058
     Dates: start: 20240102
  3. CIMZIA [Suspect]
     Active Substance: CERTOLIZUMAB PEGOL
     Dosage: 200 MILLIGRAM EV 2 WEEKS
     Route: 058
     Dates: start: 202401
  4. ACTEMRA [Concomitant]
     Active Substance: TOCILIZUMAB
     Indication: Product used for unknown indication
  5. ENBREL [Concomitant]
     Active Substance: ETANERCEPT
     Indication: Product used for unknown indication
  6. INSULIN NOS [Concomitant]
     Active Substance: INSULIN NOS
     Indication: Product used for unknown indication

REACTIONS (6)
  - Rheumatoid arthritis [Recovered/Resolved]
  - Bronchitis [Recovered/Resolved]
  - Illness [Unknown]
  - Malaise [Unknown]
  - Product dose omission issue [Unknown]
  - Therapeutic product effect decreased [Unknown]

NARRATIVE: CASE EVENT DATE: 20230501
